FAERS Safety Report 9774311 (Version 7)
Quarter: 2014Q4

REPORT INFORMATION
  Report Type: Report from Study
  Country: GB (occurrence: GB)
  Receive Date: 20131220
  Receipt Date: 20141219
  Transmission Date: 20150529
  Serious: Yes (Death, Hospitalization)
  Sender: FDA-Public Use
  Company Number: GB-ROCHE-1236324

PATIENT
  Age: 64 Year
  Sex: Male
  Weight: 79.3 kg

DRUGS (7)
  1. BENZYDAMINE [Concomitant]
     Active Substance: BENZYDAMINE
     Indication: OROPHARYNGEAL PAIN
     Route: 065
     Dates: start: 20130801
  2. COTRIMOXAZOLE [Concomitant]
     Active Substance: SULFAMETHOXAZOLE\TRIMETHOPRIM
     Indication: PROPHYLAXIS
     Route: 065
     Dates: start: 20121024
  3. BENDAMUSTINE [Suspect]
     Active Substance: BENDAMUSTINE
     Indication: NON-HODGKIN^S LYMPHOMA UNSPECIFIED HISTOLOGY INDOLENT
     Dosage: THE DATE OF LAST DOSE OF BEDAMUSTINE WAS ON 13/MAR/2013
     Route: 042
     Dates: start: 20121023, end: 20130313
  4. METOCLOPRAMIDE. [Concomitant]
     Active Substance: METOCLOPRAMIDE
     Indication: PROPHYLAXIS OF NAUSEA AND VOMITING
     Route: 065
     Dates: start: 20121023
  5. PARACETAMOL [Concomitant]
     Active Substance: ACETAMINOPHEN
     Route: 065
     Dates: start: 20130821, end: 20130912
  6. OBINUTUZUMAB [Suspect]
     Active Substance: OBINUTUZUMAB
     Indication: NON-HODGKIN^S LYMPHOMA UNSPECIFIED HISTOLOGY INDOLENT
     Dosage: THE DATE OF LAST DOSE OF OBINITUZUMAB WAS ON 09/MAY/2013, 18/JUL/2013
     Route: 042
     Dates: start: 20121023
  7. PARACETAMOL [Concomitant]
     Active Substance: ACETAMINOPHEN
     Indication: PAIN
     Route: 065
     Dates: start: 20130801

REACTIONS (3)
  - Lower respiratory tract infection [Recovered/Resolved]
  - Pseudomonal sepsis [Fatal]
  - Pyrexia [Recovered/Resolved]

NARRATIVE: CASE EVENT DATE: 20130610
